FAERS Safety Report 4891198-X (Version None)
Quarter: 2006Q1

REPORT INFORMATION
  Report Type: 
  Country: None (occurrence: None)
  Receive Date: 20060125
  Receipt Date: 20060113
  Transmission Date: 20060701
  Serious: Yes (Hospitalization)
  Sender: FDA-Public Use
  Company Number: IT-GLAXOSMITHKLINE-B0406916A

PATIENT
  Age: 79 Year
  Sex: Male

DRUGS (6)
  1. FONDAPARINUX SODIUM [Suspect]
     Dosage: 2.5MG PER DAY
     Route: 058
     Dates: start: 20031007, end: 20031014
  2. ASPIRIN [Concomitant]
  3. RAMIPRIL [Concomitant]
     Dosage: 2.5MG TWICE PER DAY
  4. SIMVASTATIN [Concomitant]
  5. METOPROLOL [Concomitant]
     Dosage: 100MG TWICE PER DAY
  6. NITRATE [Concomitant]

REACTIONS (1)
  - PUNCTURE SITE HAEMORRHAGE [None]
